FAERS Safety Report 22092654 (Version 1)
Quarter: 2023Q1

REPORT INFORMATION
  Report Type: Spontaneous
  Country: US (occurrence: US)
  Receive Date: 20230314
  Receipt Date: 20230314
  Transmission Date: 20230418
  Serious: Yes (Hospitalization, Other)
  Sender: FDA-Public Use
  Company Number: US-002147023-NVSC2023US055037

PATIENT
  Age: 63 Year
  Sex: Female

DRUGS (1)
  1. METOPROLOL TARTRATE [Suspect]
     Active Substance: METOPROLOL TARTRATE
     Indication: Product used for unknown indication
     Dosage: UNK
     Route: 065

REACTIONS (3)
  - Cardiogenic shock [Not Recovered/Not Resolved]
  - Intentional overdose [Unknown]
  - Suicide attempt [Unknown]
